FAERS Safety Report 5564058-9 (Version None)
Quarter: 2007Q4

REPORT INFORMATION
  Report Type: 
  Country: None (occurrence: None)
  Receive Date: 20071217
  Receipt Date: 20071211
  Transmission Date: 20080405
  Serious: Yes (Hospitalization)
  Sender: FDA-Public Use
  Company Number: JP-BOEHRINGER INGELHEIM PHARMACEUTICALS, INC.-2007-BP-25570NB

PATIENT
  Sex: Female

DRUGS (2)
  1. BI-SIFROL TABLETS [Suspect]
     Indication: PARKINSON'S DISEASE
     Route: 048
     Dates: start: 20070801
  2. SYMMETREL [Suspect]
     Indication: PARKINSON'S DISEASE
     Route: 048
     Dates: start: 20040101

REACTIONS (1)
  - NEUROLEPTIC MALIGNANT SYNDROME [None]
